FAERS Safety Report 21793461 (Version 1)
Quarter: 2022Q4

REPORT INFORMATION
  Report Type: Other
  Country: CN (occurrence: None)
  Receive Date: 20221229
  Receipt Date: 20221229
  Transmission Date: 20230112
  Serious: Yes (Other)
  Sender: FDA-Public Use
  Company Number: CN-ROCHE-3251215

PATIENT
  Age: 55 Year
  Sex: Male
  Weight: 62 kg

DRUGS (11)
  1. ALECTINIB [Suspect]
     Active Substance: ALECTINIB
     Indication: Lung adenocarcinoma stage IV
     Route: 048
     Dates: start: 201902, end: 201903
  2. BEVACIZUMAB [Suspect]
     Active Substance: BEVACIZUMAB
     Indication: Lung adenocarcinoma stage IV
     Route: 065
  3. CRIZOTINIB [Suspect]
     Active Substance: CRIZOTINIB
     Indication: Lung adenocarcinoma stage IV
     Route: 065
     Dates: start: 20180214
  4. CERITINIB [Suspect]
     Active Substance: CERITINIB
     Indication: Lung adenocarcinoma stage IV
     Route: 048
     Dates: start: 201808, end: 201902
  5. PEMETREXED [Suspect]
     Active Substance: PEMETREXED
     Indication: Lung adenocarcinoma stage IV
     Route: 065
  6. CARBOPLATIN [Suspect]
     Active Substance: CARBOPLATIN
     Indication: Lung adenocarcinoma stage IV
     Route: 065
  7. CETUXIMAB [Concomitant]
     Active Substance: CETUXIMAB
  8. NEDAPLATIN [Concomitant]
     Active Substance: NEDAPLATIN
  9. CAMRELIZUMAB [Concomitant]
     Active Substance: CAMRELIZUMAB
  10. LORLATINIB [Concomitant]
     Active Substance: LORLATINIB
  11. PACLITAXEL [Concomitant]
     Active Substance: PACLITAXEL

REACTIONS (3)
  - Disease progression [Recovered/Resolved]
  - Fatigue [Unknown]
  - Decreased appetite [Unknown]

NARRATIVE: CASE EVENT DATE: 20180706
